FAERS Safety Report 13297232 (Version 1)
Quarter: 2017Q1

REPORT INFORMATION
  Report Type: Spontaneous
  Country: US (occurrence: US)
  Receive Date: 20170306
  Receipt Date: 20170306
  Transmission Date: 20170428
  Serious: No
  Sender: FDA-Public Use
  Company Number: US-GLAXOSMITHKLINE-US2017GSK030499

PATIENT
  Age: 57 Year
  Sex: Male

DRUGS (2)
  1. FLOLAN DILUENT SOLUTION FOR INJECTION [Suspect]
     Active Substance: GLYCINE\MANNITOL\SODIUM CHLORIDE
     Indication: PULMONARY ARTERIAL HYPERTENSION
  2. FLOLAN [Suspect]
     Active Substance: EPOPROSTENOL SODIUM
     Indication: PULMONARY ARTERIAL HYPERTENSION
     Dosage: 80.7 DF, CO
     Dates: start: 20170106

REACTIONS (2)
  - Catheter site haemorrhage [Unknown]
  - Catheter placement [Unknown]

NARRATIVE: CASE EVENT DATE: 20170120
